FAERS Safety Report 4445064-4 (Version None)
Quarter: 2004Q3

REPORT INFORMATION
  Report Type: 
  Country: None (occurrence: None)
  Receive Date: 20040907
  Receipt Date: 20040825
  Transmission Date: 20050211
  Serious: Yes (Other)
  Sender: FDA-Public Use
  Company Number: 2004043547

PATIENT
  Age: 75 Year
  Sex: Male
  Weight: 55 kg

DRUGS (12)
  1. ZITHROMAX [Suspect]
     Indication: BRONCHITIS ACUTE
     Dosage: 500 MG (QD), ORAL
     Route: 048
     Dates: start: 20040619, end: 20040621
  2. LOXOPROFEN SODIUM [Concomitant]
  3. ALL OTHER THERAPEUTIC PRODUCTS [Concomitant]
  4. DIGESTIVES, INCL ENZYMES [Concomitant]
  5. BROTIZOLAM [Concomitant]
  6. FAMOTIDINE [Concomitant]
  7. NAFTOPIDIL [Concomitant]
  8. FURSULTIAMINE [Concomitant]
  9. THIAMINE HCL [Concomitant]
  10. ETHYL LOFLAZEPATE [Concomitant]
  11. TIZANIDINE HYDROCHLORIDE [Concomitant]
  12. MEROPENEM [Concomitant]

REACTIONS (2)
  - URINARY RETENTION [None]
  - URINE FLOW DECREASED [None]
